FAERS Safety Report 23586347 (Version 1)
Quarter: 2024Q1

REPORT INFORMATION
  Report Type: Spontaneous
  Country: UA (occurrence: UA)
  Receive Date: 20240301
  Receipt Date: 20240301
  Transmission Date: 20240410
  Serious: Yes (Hospitalization)
  Sender: FDA-Public Use
  Company Number: UA-FreseniusKabi-FK202403086

PATIENT
  Age: 56 Year
  Sex: Female

DRUGS (5)
  1. DIPRIVAN [Suspect]
     Active Substance: ISOPROPYL ALCOHOL\PROPOFOL
     Indication: General anaesthesia
     Dosage: 15 ML (300MG) SINGLE DOSE?ROUTE: INTRAVENOUS?THERAPY START TIME: 09.15 A.M.?THERAPY END TIME: 09.50
     Route: 042
  2. DIPRIVAN [Suspect]
     Active Substance: ISOPROPYL ALCOHOL\PROPOFOL
     Indication: Thyroidectomy
  3. FENTANYL [Concomitant]
     Active Substance: FENTANYL\FENTANYL CITRATE
     Indication: Product used for unknown indication
     Dosage: 0.001% 2 ML AMP.?2 ML ?TWICE?IV?THERAPY START DATE: 09:15 AM AND THERAPY END TIME : 09:40 AM
     Route: 042
  4. ATRACURIUM [Concomitant]
     Active Substance: ATRACURIUM
     Indication: Product used for unknown indication
     Dosage: VIAL, 30 MG?5 ML ?ONCE?IV?THERAPY START DATE: 09:15 AM AND THERAPY END TIME : 09:40 AM
     Route: 042
  5. Ditipine [Concomitant]
     Indication: Product used for unknown indication
     Dosage: 2% 5 ML AMP.?5 ML ?ONCE?IV?THERAPY START DATE: 09:15 AM AND THERAPY END TIME : 09:40 AM
     Route: 042

REACTIONS (7)
  - Chills [Recovering/Resolving]
  - Body temperature increased [Recovering/Resolving]
  - Blood pressure decreased [Recovering/Resolving]
  - Jaundice [Recovering/Resolving]
  - Alanine aminotransferase increased [Recovering/Resolving]
  - Aspartate aminotransferase increased [Recovering/Resolving]
  - Blood bilirubin increased [Recovering/Resolving]

NARRATIVE: CASE EVENT DATE: 20240208
